FAERS Safety Report 6656349-5 (Version None)
Quarter: 2010Q1

REPORT INFORMATION
  Report Type: 
  Country: None (occurrence: None)
  Receive Date: 20100324
  Receipt Date: 20100311
  Transmission Date: 20100710
  Serious: Yes (Death)
  Sender: FDA-Public Use
  Company Number: 1000012605

PATIENT
  Age: 30 Year
  Sex: Female

DRUGS (1)
  1. ESCITALOPRAM [Suspect]
     Indication: DEPRESSION
     Dosage: 30 MG (10 MG, 1 IN 1 D), ORAL
     Route: 048
     Dates: end: 20100201

REACTIONS (1)
  - SUDDEN DEATH [None]
